FAERS Safety Report 22059384 (Version 1)
Quarter: 2023Q1

REPORT INFORMATION
  Report Type: Spontaneous
  Country: US (occurrence: US)
  Receive Date: 20230303
  Receipt Date: 20230303
  Transmission Date: 20230418
  Serious: Yes (Hospitalization)
  Sender: FDA-Public Use
  Company Number: US-MYLANLABS-2023M1023221

PATIENT
  Age: 75 Year
  Sex: Male
  Weight: 81.6 kg

DRUGS (4)
  1. APIXABAN [Suspect]
     Active Substance: APIXABAN
     Indication: Atrial fibrillation
     Dosage: 5 MILLIGRAM, BID (DOSE AT HIS HOME)
     Route: 048
  2. APIXABAN [Suspect]
     Active Substance: APIXABAN
     Dosage: 2.5 MILLIGRAM, BID (STARTED ON HOSPITAL DAY 5)
     Route: 048
  3. CLOPIDOGREL [Concomitant]
     Active Substance: CLOPIDOGREL BISULFATE
     Indication: Prophylaxis
     Dosage: UNK (STARTED ON HOSPITAL DAY 4)
     Route: 065
  4. CLOPIDOGREL [Concomitant]
     Active Substance: CLOPIDOGREL BISULFATE
     Indication: Vascular stent thrombosis

REACTIONS (3)
  - Haemorrhage [Unknown]
  - Hypotension [Unknown]
  - Weight increased [Unknown]
